FAERS Safety Report 19472399 (Version 2)
Quarter: 2021Q3

REPORT INFORMATION
  Report Type: Other
  Country: US (occurrence: US)
  Receive Date: 20210629
  Receipt Date: 20210906
  Transmission Date: 20211014
  Serious: Yes (Other)
  Sender: FDA-Public Use
  Company Number: US-INTERCEPT-PM2021002053

PATIENT
  Age: 46 Year
  Sex: Female

DRUGS (11)
  1. OCALIVA [Suspect]
     Active Substance: OBETICHOLIC ACID
     Indication: PRIMARY BILIARY CHOLANGITIS
     Dosage: 5 MILLIGRAM, QD
     Route: 048
     Dates: start: 20190409, end: 20190409
  2. OCALIVA [Suspect]
     Active Substance: OBETICHOLIC ACID
     Dosage: 10 MILLIGRAM, QD
     Route: 048
     Dates: start: 202006, end: 20201106
  3. VITAMIN D [COLECALCIFEROL] [Concomitant]
     Active Substance: CHOLECALCIFEROL
     Dosage: 5000 INTERNATIONAL UNIT, QD
     Route: 048
  4. OCALIVA [Suspect]
     Active Substance: OBETICHOLIC ACID
     Dosage: 10 MILLIGRAM, QD
     Route: 048
  5. URSODIOL. [Concomitant]
     Active Substance: URSODIOL
     Dosage: 1250 MILLIGRAM, QD (5 TABLETS OF 250 MG)
     Route: 048
     Dates: start: 201112
  6. VITAMIN C [Concomitant]
     Active Substance: ASCORBIC ACID
     Dosage: 1000 MILLIGRAM, QD
     Route: 048
  7. OCALIVA [Suspect]
     Active Substance: OBETICHOLIC ACID
     Dosage: 10 MILLIGRAM, QD
     Route: 048
     Dates: start: 202011, end: 2020
  8. OCALIVA [Suspect]
     Active Substance: OBETICHOLIC ACID
     Dosage: 5 MILLIGRAM, QD
     Route: 048
     Dates: start: 2020
  9. CALCIUM CARBONATE. [Concomitant]
     Active Substance: CALCIUM CARBONATE
     Dosage: UNK
  10. CAL MAG [CALCIUM CARBONATE;MAGNESIUM] [Concomitant]
     Dosage: 4 DOSAGE FORM, QD (750?1000MG TOTAL)
  11. VITAMIN D3 [Concomitant]
     Active Substance: CHOLECALCIFEROL
     Dosage: 2500 INTERNATIONAL UNIT, QD

REACTIONS (13)
  - Renal hamartoma [Unknown]
  - Intraductal papillary mucinous neoplasm [Unknown]
  - Granuloma [Unknown]
  - Abdominal pain upper [Unknown]
  - Pruritus [Unknown]
  - Hepatic enzyme abnormal [Unknown]
  - Lipoma [Unknown]
  - Cholestasis [Unknown]
  - Osteopenia [Unknown]
  - Portal tract inflammation [Unknown]
  - Fatigue [Unknown]
  - Hepatic cirrhosis [Unknown]
  - Pancreatic cyst [Unknown]

NARRATIVE: CASE EVENT DATE: 20190516
